FAERS Safety Report 18282603 (Version 1)
Quarter: 2020Q3

REPORT INFORMATION
  Report Type: Spontaneous
  Country: US (occurrence: US)
  Receive Date: 20200918
  Receipt Date: 20200918
  Transmission Date: 20201103
  Serious: Yes (Death)
  Sender: FDA-Public Use
  Company Number: None

PATIENT
  Age: 29 Year
  Sex: Female
  Weight: 102.5 kg

DRUGS (6)
  1. CEFTRIXAONE [Concomitant]
     Dates: start: 20200614, end: 20200614
  2. VANCOMYCIN [Concomitant]
     Active Substance: VANCOMYCIN
     Dates: start: 20200614, end: 20200614
  3. TOCILIZUMAB. [Suspect]
     Active Substance: TOCILIZUMAB
     Indication: COVID-19 PNEUMONIA
     Dosage: ?          OTHER FREQUENCY:ONCE;?
     Route: 041
     Dates: start: 20200614, end: 20200614
  4. FUROSEMIDE. [Concomitant]
     Active Substance: FUROSEMIDE
     Dates: start: 20200619, end: 20200621
  5. NOREPINEPHRINE. [Concomitant]
     Active Substance: NOREPINEPHRINE
     Dates: start: 20200616, end: 20200616
  6. REMDESIVIR. [Suspect]
     Active Substance: REMDESIVIR
     Indication: COVID-19 PNEUMONIA
     Route: 041
     Dates: start: 20200614, end: 20200622

REACTIONS (4)
  - Multiple organ dysfunction syndrome [None]
  - Acute kidney injury [None]
  - Acute respiratory failure [None]
  - Cardiac arrest [None]

NARRATIVE: CASE EVENT DATE: 20200717
